FAERS Safety Report 6111729-1 (Version None)
Quarter: 2009Q1

REPORT INFORMATION
  Report Type: 
  Country: None (occurrence: None)
  Receive Date: 20090311
  Receipt Date: 20090309
  Transmission Date: 20090719
  Serious: Yes (Hospitalization)
  Sender: FDA-Public Use
  Company Number: DE-WYE-G03279209

PATIENT
  Sex: Male
  Weight: 110 kg

DRUGS (5)
  1. TREVILOR RETARD [Suspect]
     Dosage: 50 CAPSULES (OVERDOSE AMOUNT 7500 MG)
     Route: 048
     Dates: start: 20090307, end: 20090307
  2. VENLAFAXINE HYDROCHLORIDE [Suspect]
     Dosage: 58 TABLETS (OVERDOSE AMOUNT 13050 MG)
     Route: 048
     Dates: start: 20090307, end: 20090307
  3. SERTRALINE [Suspect]
     Dosage: 130 TABLETS (OVERDOSE AMOUNT 13000 MG)
     Route: 048
     Dates: start: 20090307, end: 20090307
  4. OPIPRAMOL HYDROCHLORIDE [Suspect]
     Dosage: 20 TABLETS (OVERDOSE AMOUNT 1000 MG)
     Route: 048
     Dates: start: 20090307, end: 20090307
  5. PARACETAMOL [Suspect]
     Dosage: 30 TABLETS (OVERDOSE AMOUNT 15000 MG)
     Route: 048
     Dates: start: 20090307, end: 20090307

REACTIONS (5)
  - CONVULSION [None]
  - DYSARTHRIA [None]
  - INTENTIONAL OVERDOSE [None]
  - NAUSEA [None]
  - SUICIDE ATTEMPT [None]
